FAERS Safety Report 19141627 (Version 2)
Quarter: 2021Q3

REPORT INFORMATION
  Report Type: Report from Study
  Country: CA (occurrence: CA)
  Receive Date: 20210415
  Receipt Date: 20210706
  Transmission Date: 20211014
  Serious: Yes (Other)
  Sender: FDA-Public Use
  Company Number: CA-TAKEDA-2020TUS053070

PATIENT
  Age: 43 Year
  Sex: Female
  Weight: 60 kg

DRUGS (3)
  1. CUVITRU [Suspect]
     Active Substance: HUMAN IMMUNOGLOBULIN G
     Dosage: UNK
     Route: 058
  2. CUVITRU [Suspect]
     Active Substance: HUMAN IMMUNOGLOBULIN G
     Indication: INFERTILITY
     Dosage: 6 GRAM, 1/WEEK
     Route: 058
     Dates: start: 20201119
  3. CUVITRU [Suspect]
     Active Substance: HUMAN IMMUNOGLOBULIN G
     Dosage: 6 GRAM, 1/WEEK
     Route: 065
     Dates: start: 20201119, end: 20210625

REACTIONS (6)
  - Injection site swelling [Unknown]
  - Off label use [Unknown]
  - Swelling [Unknown]
  - Thrombosis [Recovered/Resolved]
  - Inappropriate schedule of product administration [Unknown]
  - Ectopic pregnancy [Unknown]

NARRATIVE: CASE EVENT DATE: 20201119
